FAERS Safety Report 6355178-X (Version None)
Quarter: 2009Q3

REPORT INFORMATION
  Report Type: 
  Country: None (occurrence: None)
  Receive Date: 20090914
  Receipt Date: 20090901
  Transmission Date: 20100115
  Serious: Yes (Death, Other)
  Sender: FDA-Public Use
  Company Number: GB-JNJCH-2009023999

PATIENT
  Age: 5 Year
  Sex: Male

DRUGS (2)
  1. ACETAMINOPHEN [Suspect]
     Indication: VARICELLA
     Dosage: TEXT:UNSPECIFIED
     Route: 048
  2. NUROFEN [Suspect]
     Indication: VARICELLA
     Dosage: TEXT:UNSPECIFIED
     Route: 048

REACTIONS (1)
  - TOXIC SHOCK SYNDROME [None]
